FAERS Safety Report 12242826 (Version 4)
Quarter: 2016Q2

REPORT INFORMATION
  Report Type: Report from Study
  Country: US (occurrence: US)
  Receive Date: 20160406
  Receipt Date: 20160507
  Transmission Date: 20160815
  Serious: Yes (Death)
  Sender: FDA-Public Use
  Company Number: US-BIOGEN-2016BI00214023

PATIENT
  Age: 66 Year
  Sex: Male

DRUGS (1)
  1. TYSABRI [Suspect]
     Active Substance: NATALIZUMAB
     Indication: MULTIPLE SCLEROSIS
     Route: 042
     Dates: start: 20150202, end: 20160229

REACTIONS (4)
  - Adverse drug reaction [Unknown]
  - Depression [Fatal]
  - Weight decreased [Fatal]
  - Completed suicide [Fatal]

NARRATIVE: CASE EVENT DATE: 20160316
